FAERS Safety Report 9393570 (Version 2)
Quarter: 2014Q2

REPORT INFORMATION
  Report Type: Spontaneous
  Country: IT (occurrence: IT)
  Receive Date: 20130710
  Receipt Date: 20140402
  Transmission Date: 20141212
  Serious: Yes (Other)
  Sender: FDA-Public Use
  Company Number: IT-PFIZER INC-2013202133

PATIENT
  Age: 83 Year
  Sex: Male

DRUGS (2)
  1. LYRICA [Suspect]
     Dosage: 75 MG, 1X/DAY
     Route: 048
     Dates: end: 20130609
  2. TALOFEN [Suspect]
     Dosage: 15 GTT, 1X/DAY
     Route: 048
     Dates: end: 20130609

REACTIONS (6)
  - Agitation [Recovered/Resolved]
  - Heart rate decreased [Recovered/Resolved]
  - Peripheral artery aneurysm [Unknown]
  - Arterial thrombosis [Unknown]
  - Malaise [Recovered/Resolved]
  - Presyncope [Recovered/Resolved]
